FAERS Safety Report 4382876-X (Version None)
Quarter: 2004Q2

REPORT INFORMATION
  Report Type: 
  Country: None (occurrence: None)
  Receive Date: 20040602
  Receipt Date: 20031001
  Transmission Date: 20050107
  Serious: Yes (Hospitalization, Other)
  Sender: FDA-Public Use
  Company Number: NSADSS2002039947

PATIENT
  Age: 83 Year
  Sex: Female
  Weight: 88.905 kg

DRUGS (8)
  1. PROPULSID [Suspect]
     Indication: GASTROOESOPHAGEAL REFLUX DISEASE
     Dosage: 10 MG, 3 IN 1 DAY, ORAL
     Route: 048
     Dates: start: 19990621, end: 20000221
  2. PROPULSID [Suspect]
     Indication: GASTROOESOPHAGEAL REFLUX DISEASE
     Dosage: 10 MG, 3 IN 1 DAY, ORAL
     Route: 048
     Dates: start: 20000221
  3. LASIX [Concomitant]
  4. CELEBREX [Concomitant]
  5. ISMO [Concomitant]
  6. NITROGLYCERIN [Concomitant]
  7. CLARITIN [Concomitant]
  8. LANOXIN [Concomitant]

REACTIONS (14)
  - ANGINA PECTORIS [None]
  - AORTIC VALVE INCOMPETENCE [None]
  - CARDIAC DISORDER [None]
  - CARDIAC FAILURE CONGESTIVE [None]
  - CARDIAC VALVE DISEASE [None]
  - CHEST PAIN [None]
  - DIZZINESS [None]
  - ELECTROCARDIOGRAM QT PROLONGED [None]
  - HEADACHE [None]
  - MEDICATION ERROR [None]
  - OEDEMA [None]
  - TORSADE DE POINTES [None]
  - VENTRICULAR FIBRILLATION [None]
  - VENTRICULAR TACHYCARDIA [None]
